FAERS Safety Report 7375955-6 (Version None)
Quarter: 2011Q1

REPORT INFORMATION
  Report Type: 
  Country: None (occurrence: None)
  Receive Date: 20110325
  Receipt Date: 20110316
  Transmission Date: 20110831
  Serious: Yes (Hospitalization)
  Sender: FDA-Public Use
  Company Number: JP-ASTRAZENECA-2011SE15972

PATIENT
  Age: 67 Year
  Sex: Male
  Weight: 71 kg

DRUGS (1)
  1. BLOPRESS PLUS [Suspect]
     Indication: HYPERTENSION
     Dosage: 32/12.5 MG
     Route: 048
     Dates: start: 20100528

REACTIONS (1)
  - CEREBROVASCULAR ACCIDENT [None]
